FAERS Safety Report 12524419 (Version 3)
Quarter: 2016Q3

REPORT INFORMATION
  Report Type: Spontaneous
  Country: HR (occurrence: HR)
  Receive Date: 20160704
  Receipt Date: 20160725
  Transmission Date: 20161109
  Serious: Yes (Death)
  Sender: FDA-Public Use
  Company Number: HR-ROCHE-1786863

PATIENT
  Age: 75 Year
  Sex: Male

DRUGS (16)
  1. ROCEPHIN [Suspect]
     Active Substance: CEFTRIAXONE SODIUM
     Indication: PRODUCT USED FOR UNKNOWN INDICATION
     Route: 042
     Dates: start: 20160502, end: 20160503
  2. FURSEMID [Concomitant]
     Active Substance: FUROSEMIDE
     Route: 042
     Dates: start: 20160430
  3. PORTALAK (LACTULOSE) [Concomitant]
     Route: 065
     Dates: start: 20160501
  4. FRAGMIN [Concomitant]
     Active Substance: DALTEPARIN SODIUM
     Route: 065
     Dates: start: 20160503
  5. NAHCO3 [Concomitant]
     Active Substance: SODIUM BICARBONATE
     Route: 065
     Dates: start: 20160501
  6. CONTROLOC [Suspect]
     Active Substance: PANTOPRAZOLE SODIUM
     Indication: PRODUCT USED FOR UNKNOWN INDICATION
     Route: 042
     Dates: start: 20160503, end: 20160503
  7. FURSEMID [Concomitant]
     Active Substance: FUROSEMIDE
     Route: 042
     Dates: start: 20160502
  8. FURSEMID [Concomitant]
     Active Substance: FUROSEMIDE
     Route: 042
     Dates: start: 20160501
  9. DOBUTREX [Concomitant]
     Active Substance: DOBUTAMINE HYDROCHLORIDE
     Dosage: 500 MG IN 50 ML OF PHYSIOLOGICAL SOLUTION
     Route: 065
     Dates: start: 20160502
  10. DOBUTREX [Concomitant]
     Active Substance: DOBUTAMINE HYDROCHLORIDE
     Dosage: 500 MG IN 50 ML OF PHYSIOLOGICAL SOLUTION
     Route: 065
     Dates: start: 20160503
  11. NORMABEL [Concomitant]
     Active Substance: DIAZEPAM
     Dosage: 3 AMPOULES IN 100 ML OF PHYSIOLOGICAL SOLUTION
     Route: 065
     Dates: start: 20160501
  12. ROCEPHIN [Suspect]
     Active Substance: CEFTRIAXONE SODIUM
     Route: 042
     Dates: start: 20160502, end: 20160503
  13. DOBUTREX [Concomitant]
     Active Substance: DOBUTAMINE HYDROCHLORIDE
     Dosage: 250 MG IN 50 ML OF PHYSIOLOGICAL SOLUTION
     Route: 065
     Dates: start: 20160430
  14. FRAGMIN [Concomitant]
     Active Substance: DALTEPARIN SODIUM
     Route: 065
     Dates: start: 20160502
  15. DULCOLAX NOS [Concomitant]
     Active Substance: BISACODYL OR DOCUSATE SODIUM
     Route: 065
     Dates: start: 20160430
  16. KCL [Concomitant]
     Active Substance: POTASSIUM CHLORIDE
     Route: 065
     Dates: start: 20160501

REACTIONS (2)
  - Metastatic carcinoma of the bladder [Fatal]
  - Cardio-respiratory arrest [Fatal]

NARRATIVE: CASE EVENT DATE: 20160503
